FAERS Safety Report 18453514 (Version 1)
Quarter: 2020Q4

REPORT INFORMATION
  Report Type: Spontaneous
  Country: US (occurrence: US)
  Receive Date: 20201102
  Receipt Date: 20201102
  Transmission Date: 20210114
  Serious: Yes (Life-Threatening, Other)
  Sender: FDA-Public Use
  Company Number: US-ABBVIE-20K-163-3464387-00

PATIENT
  Sex: Female

DRUGS (1)
  1. BIAXIN [Suspect]
     Active Substance: CLARITHROMYCIN
     Indication: INFECTION PROPHYLAXIS
     Route: 048
     Dates: start: 2012, end: 2012

REACTIONS (5)
  - Pruritus [Recovered/Resolved]
  - Drug hypersensitivity [Unknown]
  - Rash [Recovered/Resolved]
  - Anaphylactic reaction [Recovered/Resolved]
  - Throat tightness [Recovered/Resolved]

NARRATIVE: CASE EVENT DATE: 2012
